FAERS Safety Report 6223281-0 (Version None)
Quarter: 2009Q2

REPORT INFORMATION
  Report Type: 
  Country: None (occurrence: None)
  Receive Date: 20090611
  Receipt Date: 20090601
  Transmission Date: 20091009
  Serious: No
  Sender: FDA-Public Use
  Company Number: US-ELI_LILLY_AND_COMPANY-US200904001799

PATIENT
  Sex: Male

DRUGS (2)
  1. HUMALOG [Suspect]
     Dosage: 3 U, UNK
     Dates: start: 20081201
  2. HUMALOG [Suspect]
     Dosage: UNK, AS NEEDED

REACTIONS (1)
  - BLOOD GLUCOSE INCREASED [None]
